FAERS Safety Report 8454465-9 (Version None)
Quarter: 2012Q2

REPORT INFORMATION
  Report Type: 
  Country: None (occurrence: None)
  Receive Date: 20120621
  Receipt Date: 20120612
  Transmission Date: 20120825
  Serious: No
  Sender: FDA-Public Use
  Company Number: US-BIOGENIDEC-2012BI020820

PATIENT
  Sex: Female

DRUGS (1)
  1. TYSABRI [Suspect]
     Indication: MULTIPLE SCLEROSIS
     Route: 042
     Dates: start: 20070806

REACTIONS (5)
  - INFUSION SITE HAEMATOMA [None]
  - POOR VENOUS ACCESS [None]
  - STRESS [None]
  - ANXIETY [None]
  - INFUSION SITE SWELLING [None]
